FAERS Safety Report 13275402 (Version 1)
Quarter: 2017Q1

REPORT INFORMATION
  Report Type: Spontaneous
  Country: CH (occurrence: CH)
  Receive Date: 20170228
  Receipt Date: 20170228
  Transmission Date: 20170428
  Serious: Yes (Death, Other)
  Sender: FDA-Public Use
  Company Number: CH-BAXTER-2017BAX007498

PATIENT
  Age: 76 Year
  Sex: Female
  Weight: 81 kg

DRUGS (7)
  1. ENDOXAN 1 G [Suspect]
     Active Substance: CYCLOPHOSPHAMIDE
     Indication: BREAST CANCER
     Dosage: ADJUVANT CHEMOTHERAPY BY MAMMA CARCINOMA, CYCLE 1 DAY 1
     Route: 042
     Dates: start: 20170119, end: 20170119
  2. EMEND [Suspect]
     Active Substance: APREPITANT
     Indication: NAUSEA
     Dosage: DAY 1
     Route: 048
     Dates: start: 20170119, end: 20170119
  3. HEPARIN [Suspect]
     Active Substance: HEPARIN SODIUM
     Indication: ADVERSE EVENT
     Route: 065
  4. EMEND [Suspect]
     Active Substance: APREPITANT
     Dosage: DAY 2 AND DAY 3
     Route: 065
     Dates: start: 20170120, end: 20170121
  5. FORTECORTIN [Suspect]
     Active Substance: DEXAMETHASONE
     Indication: NAUSEA
     Route: 048
     Dates: start: 20170119, end: 20170121
  6. ADRIBLASTIN [Suspect]
     Active Substance: DOXORUBICIN HYDROCHLORIDE
     Indication: BREAST CANCER
     Dosage: ADJUVANT CHEMOTHERAPY BY MAMMA CARCINOMA, CYCLE 1 DAY 1
     Route: 042
     Dates: start: 20170119, end: 20170119
  7. ZOFRAN [Suspect]
     Active Substance: ONDANSETRON HYDROCHLORIDE
     Indication: PROPHYLAXIS OF NAUSEA AND VOMITING
     Route: 048
     Dates: start: 20170119, end: 20170121

REACTIONS (12)
  - Febrile neutropenia [Fatal]
  - Infection [Fatal]
  - Dyspepsia [Unknown]
  - Pain in extremity [Unknown]
  - Pulmonary embolism [Fatal]
  - Aortic thrombosis [Unknown]
  - Splenic infarction [Fatal]
  - Embolism [Unknown]
  - Haemodynamic instability [Unknown]
  - Tachypnoea [Unknown]
  - Multiple organ dysfunction syndrome [Fatal]
  - Tachycardia [Unknown]

NARRATIVE: CASE EVENT DATE: 2017
